FAERS Safety Report 14892839 (Version 1)
Quarter: 2018Q2

REPORT INFORMATION
  Report Type: Spontaneous
  Country: GB (occurrence: GB)
  Receive Date: 20180426
  Receipt Date: 20180426
  Transmission Date: 20180711
  Serious: No
  Sender: FDA-Public Use
  Company Number: None

PATIENT
  Age: 61 Year
  Weight: 75 kg

DRUGS (8)
  1. LOSEC [Concomitant]
     Active Substance: OMEPRAZOLE
  2. IBULEVE GEL [Concomitant]
  3. BETAMETHASONE NASAL DROPS [Concomitant]
  4. ESTRADIOL PESSARIES [Concomitant]
  5. COLECALCIFEROL [Concomitant]
     Active Substance: CHOLECALCIFEROL
  6. TRIAMCINOLONE  NASAL SPRAY [Concomitant]
  7. EFUDEX [Suspect]
     Active Substance: FLUOROURACIL
     Indication: HYPERKERATOSIS
     Dosage: ?          QUANTITY:1 SMALL;OTHER FREQUENCY:ONCE;?
     Route: 061
     Dates: start: 20180425, end: 20180426
  8. COCODAMOL [Concomitant]
     Active Substance: ACETAMINOPHEN\CODEINE PHOSPHATE

REACTIONS (6)
  - Headache [None]
  - Nausea [None]
  - Gastrooesophageal reflux disease [None]
  - Palpitations [None]
  - Vision blurred [None]
  - Bursitis [None]

NARRATIVE: CASE EVENT DATE: 20180426
